FAERS Safety Report 15650385 (Version 1)
Quarter: 2018Q4

REPORT INFORMATION
  Report Type: Spontaneous
  Country: IT (occurrence: IT)
  Receive Date: 20181123
  Receipt Date: 20181123
  Transmission Date: 20190205
  Serious: Yes (Hospitalization)
  Sender: FDA-Public Use
  Company Number: IT-ROCHE-2218678

PATIENT
  Age: 51 Year
  Sex: Female

DRUGS (3)
  1. TEOFILLINA [Concomitant]
     Indication: ASTHMA
     Route: 065
  2. MONTELUKAST [Concomitant]
     Active Substance: MONTELUKAST SODIUM
     Indication: ASTHMA
     Route: 048
  3. DIAZEPAM. [Suspect]
     Active Substance: DIAZEPAM
     Indication: INSOMNIA
     Dosage: UNIT DOSE: 60 [DRP]
     Route: 065

REACTIONS (2)
  - Coma [Recovered/Resolved]
  - Acute respiratory failure [Recovered/Resolved]
